FAERS Safety Report 20487664 (Version 1)
Quarter: 2022Q1

REPORT INFORMATION
  Report Type: Spontaneous
  Country: US (occurrence: US)
  Receive Date: 20220218
  Receipt Date: 20220218
  Transmission Date: 20220424
  Serious: No
  Sender: FDA-Public Use
  Company Number: US-drreddys-SPO/USA/22/0146771

PATIENT
  Age: 31 Year
  Sex: Male

DRUGS (1)
  1. ZENATANE [Suspect]
     Active Substance: ISOTRETINOIN
     Indication: Product used for unknown indication
     Dosage: RMA ISSUE DATE: 13/JANUARY/2022 09:21:22 AM, 07/DECEMBER/2022 04:17:52 PM, 02/NOVEMBER/2022 03:07:56

REACTIONS (3)
  - Blood cholesterol increased [Unknown]
  - Myalgia [Unknown]
  - Back pain [Unknown]
